FAERS Safety Report 4929079-5 (Version None)
Quarter: 2006Q1

REPORT INFORMATION
  Report Type: 
  Country: None (occurrence: None)
  Receive Date: 20060301
  Receipt Date: 20050426
  Transmission Date: 20060701
  Serious: Yes (Hospitalization)
  Sender: FDA-Public Use
  Company Number: US-MERCK-0504USA04938

PATIENT
  Age: 69 Year
  Sex: Female
  Weight: 96 kg

DRUGS (1)
  1. VIOXX [Suspect]
     Indication: ARTHRITIS
     Route: 048
     Dates: start: 20010326, end: 20030701

REACTIONS (7)
  - ACUTE MYOCARDIAL INFARCTION [None]
  - ARTERIOSCLEROSIS [None]
  - BRONCHITIS [None]
  - CHEST PAIN [None]
  - NEPHROLITHIASIS [None]
  - OBSTRUCTIVE UROPATHY [None]
  - PALPITATIONS [None]
